FAERS Safety Report 5679405-7 (Version None)
Quarter: 2008Q1

REPORT INFORMATION
  Report Type: 
  Country: None (occurrence: None)
  Receive Date: 20080325
  Receipt Date: 20080313
  Transmission Date: 20080703
  Serious: Yes (Other)
  Sender: FDA-Public Use
  Company Number: US-PFIZER INC-2008024282

PATIENT
  Sex: Female
  Weight: 81.818 kg

DRUGS (2)
  1. LYRICA [Suspect]
     Indication: NERVE COMPRESSION
     Route: 048
  2. EVISTA [Concomitant]

REACTIONS (2)
  - MEMORY IMPAIRMENT [None]
  - THYROID CANCER [None]
